FAERS Safety Report 17052516 (Version 1)
Quarter: 2019Q4

REPORT INFORMATION
  Report Type: Spontaneous
  Country: BR (occurrence: BR)
  Receive Date: 20191120
  Receipt Date: 20191120
  Transmission Date: 20200122
  Serious: Yes (Other)
  Sender: FDA-Public Use
  Company Number: BR-GILEAD-2019-0438206

PATIENT
  Age: 23 Year
  Sex: Female

DRUGS (8)
  1. ATAZANAVIR. [Concomitant]
     Active Substance: ATAZANAVIR
  2. CIPROFIBRATE [Concomitant]
     Active Substance: CIPROFIBRATE
  3. RITONAVIR. [Concomitant]
     Active Substance: RITONAVIR
  4. VIREAD [Suspect]
     Active Substance: TENOFOVIR DISOPROXIL FUMARATE
     Indication: HIV INFECTION
     Dosage: UNK
     Route: 065
  5. ROSUVASTATIN. [Concomitant]
     Active Substance: ROSUVASTATIN
  6. LAMIVUDINE. [Concomitant]
     Active Substance: LAMIVUDINE
  7. LEVEMIR [Concomitant]
     Active Substance: INSULIN DETEMIR
  8. NOVORAPID [Concomitant]
     Active Substance: INSULIN ASPART

REACTIONS (1)
  - Osteoporosis [Unknown]
